FAERS Safety Report 16500978 (Version 1)
Quarter: 2019Q3

REPORT INFORMATION
  Report Type: Spontaneous
  Country: US (occurrence: US)
  Receive Date: 20190628
  Receipt Date: 20190628
  Transmission Date: 20191004
  Serious: Yes (Other)
  Sender: FDA-Public Use
  Company Number: None

PATIENT
  Age: 80 Year
  Sex: Male

DRUGS (3)
  1. CABOMETYX [Suspect]
     Active Substance: CABOZANTINIB S-MALATE
     Indication: RENAL CANCER
     Route: 048
     Dates: start: 20190507
  2. GRANIX 480 MCG / 0.8 ML SYR [Concomitant]
  3. XGEVA 120 MG / 1.7 ML [Concomitant]

REACTIONS (1)
  - Incorrect dose administered [None]
